FAERS Safety Report 5046494-2 (Version None)
Quarter: 2006Q2

REPORT INFORMATION
  Report Type: 
  Country: None (occurrence: None)
  Receive Date: 20060629
  Receipt Date: 20060619
  Transmission Date: 20061013
  Serious: Yes (Life-Threatening, Hospitalization, Other)
  Sender: FDA-Public Use
  Company Number: 2006-00886

PATIENT
  Age: 73 Year
  Sex: Male
  Weight: 131 kg

DRUGS (15)
  1. VELCADE [Suspect]
     Indication: PROSTATE CANCER
     Dosage: 1.60 MG/M2, INTRAVENOUS
     Route: 042
     Dates: start: 20060314, end: 20060411
  2. DOCETAXEL (DOCETAXEL) [Suspect]
     Indication: PROSTATE CANCER
     Dosage: 75.00 MG/M2, INTRAVENOUS
     Route: 042
     Dates: start: 20060314, end: 20060404
  3. PREDNISONE TAB [Suspect]
     Indication: PROSTATE CANCER
     Dosage: 5.00 MG,
     Dates: start: 20060327
  4. LASIX [Concomitant]
  5. DIOVAN [Concomitant]
  6. TERAZOSIN (TERAZOSIN) [Concomitant]
  7. COUMADIN [Concomitant]
  8. ZOLADEX [Concomitant]
  9. ATENOLOL [Concomitant]
  10. HYDROCODONE W/ACETAMINOPHEN (PARACETAMOL, HYDROCODONE BITARTRATE) [Concomitant]
  11. VITAMIN E/001105/ (TOCOPHEROL) [Concomitant]
  12. MULTIVITAMINS (ERGOCALCIFEROL, ASCORBIC ACID, PANTHENOL, NICOTINAMIDE, [Concomitant]
  13. CALCIUM (CALCIUM) [Concomitant]
  14. ACIDOPHILUS (LACTOBACILLUS ACIDOPHILUS) [Concomitant]
  15. VICODIN [Concomitant]

REACTIONS (15)
  - ABDOMINAL PAIN UPPER [None]
  - CANDIDIASIS [None]
  - CHILLS [None]
  - DEEP VEIN THROMBOSIS [None]
  - DIARRHOEA [None]
  - DIZZINESS [None]
  - FEBRILE NEUTROPENIA [None]
  - FEELING COLD [None]
  - FLATULENCE [None]
  - HYPOTENSION [None]
  - NAUSEA [None]
  - NEUROPATHY PERIPHERAL [None]
  - ORTHOSTATIC HYPOTENSION [None]
  - OSTEOARTHRITIS [None]
  - PLATELET COUNT DECREASED [None]
